FAERS Safety Report 8802910 (Version 2)
Quarter: 2012Q4

REPORT INFORMATION
  Report Type: 
  Country: JP (occurrence: JP)
  Receive Date: 20120922
  Receipt Date: 20121022
  Transmission Date: 20130627
  Serious: Yes (Death)
  Sender: FDA-Public Use
  Company Number: JP-BAYER-2012-093651

PATIENT
  Age: 75 Year
  Sex: Male
  Weight: 40 kg

DRUGS (13)
  1. XARELTO [Suspect]
     Indication: ATRIAL FIBRILLATION
     Dosage: 15 mg, OM
     Route: 048
     Dates: start: 20120807, end: 20120903
  2. XARELTO [Interacting]
     Indication: CEREBROVASCULAR ACCIDENT PROPHYLAXIS
  3. BAYASPIRIN [Interacting]
     Indication: THROMBOSIS PROPHYLAXIS
     Dosage: 100 mg, QD
     Route: 048
     Dates: start: 20120214, end: 20120903
  4. PARAMIDIN [Concomitant]
     Dosage: Daily dose 300 mg
     Route: 048
     Dates: start: 20111205
  5. TAKEPRON [Concomitant]
     Indication: GASTRIC ULCER
     Dosage: 30 mg, UNK
     Dates: start: 20120312, end: 20120903
  6. TAKEPRON [Concomitant]
     Indication: GASTROOESOPHAGEAL REFLUX DISEASE
  7. MUCOSOLVAN [Concomitant]
     Dosage: 45 mg, daily
     Route: 048
     Dates: start: 20120312, end: 20120903
  8. TETRAMIDE [Concomitant]
     Dosage: 30 mg, daily
     Route: 048
     Dates: start: 20120312, end: 20120903
  9. SEROQUEL [Concomitant]
     Dosage: 100 mg, daily
     Route: 048
     Dates: start: 20120312, end: 20120903
  10. SPIRIVA [Concomitant]
     Dosage: 2 puff(s), daily
     Route: 055
     Dates: start: 20120312, end: 20120903
  11. OXYGEN [Concomitant]
     Indication: BRAIN STEM HAEMORRHAGE
     Dosage: UNK
     Route: 055
     Dates: start: 201201
  12. TEPRENONE [Concomitant]
     Dosage: 150 mg, daily
     Route: 048
     Dates: start: 20120406, end: 20120903
  13. AMLODIN [Concomitant]
     Dosage: UNK
     Route: 048
     Dates: start: 201111

REACTIONS (1)
  - Brain stem haemorrhage [Fatal]
